FAERS Safety Report 11008974 (Version 1)
Quarter: 2015Q2

REPORT INFORMATION
  Report Type: Spontaneous
  Country: FR (occurrence: None)
  Receive Date: 20150408
  Receipt Date: 20150408
  Transmission Date: 20150821
  Serious: Yes (Hospitalization)
  Sender: FDA-Public Use
  Company Number: NSR_02023_2015

PATIENT
  Age: 9 Month
  Sex: Female
  Weight: 7.5 kg

DRUGS (1)
  1. PROPRANOLOL [Suspect]
     Active Substance: PROPRANOLOL\PROPRANOLOL HYDROCHLORIDE
     Indication: HAEMANGIOMA

REACTIONS (8)
  - Acidosis [None]
  - Hypokalaemia [None]
  - Gastroenteritis rotavirus [None]
  - Dehydration [None]
  - Blood calcium decreased [None]
  - Hypernatraemia [None]
  - Anaemia [None]
  - Hypovolaemic shock [None]
